FAERS Safety Report 9711354 (Version 2)
Quarter: 2014Q2

REPORT INFORMATION
  Report Type: Spontaneous
  Country: US (occurrence: US)
  Receive Date: 20131126
  Receipt Date: 20140510
  Transmission Date: 20141212
  Serious: No
  Sender: FDA-Public Use
  Company Number: US-BRISTOL-MYERS SQUIBB COMPANY-19204593

PATIENT
  Age: 55 Year
  Sex: Male
  Weight: 145.57 kg

DRUGS (3)
  1. BYETTA [Suspect]
     Indication: TYPE 2 DIABETES MELLITUS
  2. METFORMIN [Concomitant]
     Dosage: 1DF=850 UNITS NOS
  3. INSULIN [Concomitant]

REACTIONS (2)
  - Drug dose omission [Unknown]
  - Incorrect product storage [Unknown]
